FAERS Safety Report 9512986 (Version 1)
Quarter: 2013Q1

REPORT INFORMATION
  Report Type: Spontaneous
  Country: US (occurrence: None)
  Receive Date: 20130305
  Receipt Date: 20130305
  Transmission Date: 20140127
  Serious: Yes (Other)
  Sender: FDA-Public Use
  Company Number: 163-21880-12101335

PATIENT
  Age: 60 Year
  Sex: Male
  Weight: 111.13 kg

DRUGS (7)
  1. REVLIMID [Suspect]
     Indication: PLASMA CELL MYELOMA
     Dosage: 1 IN 1 D
     Route: 048
     Dates: start: 201004
  2. ACYCLOVIR [Concomitant]
  3. KRILL OIL [Concomitant]
  4. MULTIVITAMINS [Concomitant]
  5. TRAMADOL [Concomitant]
  6. VITAMIN D3 [Concomitant]
  7. ZOMETA [Concomitant]

REACTIONS (3)
  - Gynaecomastia [None]
  - Prostatomegaly [None]
  - Prostatic specific antigen increased [None]
